FAERS Safety Report 7012528-9 (Version None)
Quarter: 2010Q3

REPORT INFORMATION
  Report Type: 
  Country: None (occurrence: None)
  Receive Date: 20100924
  Receipt Date: 20100803
  Transmission Date: 20110219
  Serious: No
  Sender: FDA-Public Use
  Company Number: US-JNJFOC-20100704853

PATIENT
  Sex: Female
  Weight: 92.99 kg

DRUGS (7)
  1. INVEGA SUSTENNA [Suspect]
     Indication: PRODUCT USED FOR UNKNOWN INDICATION
     Route: 030
  2. XANAX [Concomitant]
  3. TRAZODONE HCL [Concomitant]
  4. TOPAMAX [Concomitant]
  5. PROPRANOLOL [Concomitant]
  6. PAXIL [Concomitant]
  7. NEURONTIN [Concomitant]

REACTIONS (1)
  - INJECTION SITE NODULE [None]
